FAERS Safety Report 15877396 (Version 1)
Quarter: 2019Q1

REPORT INFORMATION
  Report Type: Spontaneous
  Country: US (occurrence: US)
  Receive Date: 20190128
  Receipt Date: 20190128
  Transmission Date: 20190417
  Serious: No
  Sender: FDA-Public Use
  Company Number: US-SA-2019SA019006

PATIENT
  Sex: Male

DRUGS (4)
  1. ALLEGRA ALLERGY [Suspect]
     Active Substance: FEXOFENADINE HYDROCHLORIDE
     Indication: RHINORRHOEA
     Dosage: UNK UNK, UNK
     Route: 065
  2. VICKS DAYQUIL [Suspect]
     Active Substance: DEXTROMETHORPHAN HYDROBROMIDE\GUAIFENESIN
     Dosage: UNK UNK, UNK
     Route: 065
  3. VITAMIN C [Suspect]
     Active Substance: ASCORBIC ACID
     Dosage: UNK UNK, UNK
     Route: 065
  4. AIRBORNE [Suspect]
     Active Substance: HERBALS\MINERALS\VITAMINS
     Dosage: UNK UNK, UNK

REACTIONS (1)
  - Drug ineffective [Unknown]
